FAERS Safety Report 13078769 (Version 2)
Quarter: 2017Q1

REPORT INFORMATION
  Report Type: Spontaneous
  Country: US (occurrence: US)
  Receive Date: 20170102
  Receipt Date: 20170119
  Transmission Date: 20170428
  Serious: No
  Sender: FDA-Public Use
  Company Number: US-ASTRAZENECA-2016SF37429

PATIENT
  Age: 900 Month
  Sex: Female
  Weight: 63.5 kg

DRUGS (4)
  1. SYMBICORT [Suspect]
     Active Substance: BUDESONIDE\FORMOTEROL FUMARATE DIHYDRATE
     Indication: CHRONIC OBSTRUCTIVE PULMONARY DISEASE
     Dosage: DOSE: 80 MCG/4.5 MCG, 2 PUFFS, FREQUNCY: TWO TIMES A DAY
     Route: 055
     Dates: start: 201511, end: 201511
  2. SYMBICORT [Suspect]
     Active Substance: BUDESONIDE\FORMOTEROL FUMARATE DIHYDRATE
     Indication: EMPHYSEMA
     Dosage: DOSE: 80 MCG/4.5 MCG, 2 PUFFS, FREQUNCY: TWO TIMES A DAY
     Route: 055
     Dates: start: 201511, end: 201511
  3. SYMBICORT [Suspect]
     Active Substance: BUDESONIDE\FORMOTEROL FUMARATE DIHYDRATE
     Indication: EMPHYSEMA
     Dosage: DOSE: 80 MCG/4.5 MCG, 2 PUFFS, FREQUNCY: TWO TIMES A DAY
     Route: 055
     Dates: start: 201612
  4. SYMBICORT [Suspect]
     Active Substance: BUDESONIDE\FORMOTEROL FUMARATE DIHYDRATE
     Indication: CHRONIC OBSTRUCTIVE PULMONARY DISEASE
     Dosage: DOSE: 80 MCG/4.5 MCG, 2 PUFFS, FREQUNCY: TWO TIMES A DAY
     Route: 055
     Dates: start: 201612

REACTIONS (2)
  - Off label use [Unknown]
  - Dizziness [Unknown]

NARRATIVE: CASE EVENT DATE: 201511
